FAERS Safety Report 15997052 (Version 1)
Quarter: 2019Q1

REPORT INFORMATION
  Report Type: Report from Study
  Country: RU (occurrence: RU)
  Receive Date: 20190222
  Receipt Date: 20190222
  Transmission Date: 20190418
  Serious: Yes (Other)
  Sender: FDA-Public Use
  Company Number: RU-ASTRAZENECA-2018SF54676

PATIENT
  Age: 98 Year
  Sex: Female
  Weight: 60 kg

DRUGS (4)
  1. FORXIGA [Suspect]
     Active Substance: DAPAGLIFLOZIN
     Indication: TYPE 2 DIABETES MELLITUS
     Route: 048
     Dates: start: 20181117
  2. ENALAPRIL [Concomitant]
     Active Substance: ENALAPRIL
  3. METOPROLOL. [Concomitant]
     Active Substance: METOPROLOL
  4. DIABETON [Concomitant]
     Active Substance: GLICLAZIDE

REACTIONS (7)
  - Genital burning sensation [Not Recovered/Not Resolved]
  - Product use issue [Not Recovered/Not Resolved]
  - Pruritus genital [Not Recovered/Not Resolved]
  - Tongue oedema [Recovered/Resolved]
  - Weight decreased [Not Recovered/Not Resolved]
  - Off label use [Not Recovered/Not Resolved]
  - Tongue erythema [Recovered/Resolved]
